FAERS Safety Report 17813636 (Version 1)
Quarter: 2020Q2

REPORT INFORMATION
  Report Type: Spontaneous
  Country: CN (occurrence: CN)
  Receive Date: 20200521
  Receipt Date: 20200521
  Transmission Date: 20200714
  Serious: Yes (Disabling)
  Sender: FDA-Public Use
  Company Number: CN-PURDUE PHARMA-GBR-2020-0076782

PATIENT
  Age: 85 Year
  Sex: Male
  Weight: 44 kg

DRUGS (2)
  1. TRAMADOL HYDROCHLORIDE. [Suspect]
     Active Substance: TRAMADOL HYDROCHLORIDE
     Indication: BREAKTHROUGH PAIN
     Dosage: 100 MG, DAILY
     Route: 030
     Dates: start: 20200509, end: 20200509
  2. MS CONTIN [Suspect]
     Active Substance: MORPHINE SULFATE
     Indication: LUNG NEOPLASM MALIGNANT
     Dosage: 10 MG, Q12H
     Route: 048
     Dates: start: 20200508, end: 20200509

REACTIONS (5)
  - Pupillary reflex impaired [Recovered/Resolved]
  - Miosis [Recovering/Resolving]
  - Somnolence [Recovering/Resolving]
  - Respiratory disorder [Recovering/Resolving]
  - Muscular weakness [Recovered/Resolved]

NARRATIVE: CASE EVENT DATE: 20200509
